FAERS Safety Report 14278567 (Version 1)
Quarter: 2017Q4

REPORT INFORMATION
  Report Type: Spontaneous
  Country: PL (occurrence: PL)
  Receive Date: 20171212
  Receipt Date: 20171212
  Transmission Date: 20180321
  Serious: Yes (Death, Other)
  Sender: FDA-Public Use
  Company Number: PL-MYLANLABS-2017M1077992

PATIENT

DRUGS (16)
  1. TRAMADOL. [Suspect]
     Active Substance: TRAMADOL
     Indication: PAIN
     Dosage: 50-75 MG DROPS
     Dates: start: 2012
  2. INSULIN [Concomitant]
     Active Substance: INSULIN NOS
     Indication: TYPE 2 DIABETES MELLITUS
  3. SODIUM VALPROATE [Concomitant]
     Active Substance: VALPROATE SODIUM
     Indication: EPILEPSY
     Dosage: 1000 MG, QD
     Dates: start: 2012
  4. TRAMADOL. [Suspect]
     Active Substance: TRAMADOL
     Dosage: 400 MG, QD
     Dates: start: 20120807
  5. MORPHINE [Suspect]
     Active Substance: MORPHINE
     Dosage: 10 MG, Q4H
     Route: 058
     Dates: start: 20120817
  6. MORPHINE [Suspect]
     Active Substance: MORPHINE
     Dosage: 1 DF, Q6H
     Route: 058
     Dates: start: 201208
  7. PAPAVERINE [Concomitant]
     Active Substance: PAPAVERINE
     Indication: ANALGESIC THERAPY
     Dosage: UNK
  8. MORPHINE [Suspect]
     Active Substance: MORPHINE
     Indication: PAIN
     Dosage: 2.5 MG
     Route: 048
     Dates: start: 20120615
  9. OXYCODONE [Suspect]
     Active Substance: OXYCODONE
     Indication: PAIN
     Dosage: CONTROLLED RELEASE
     Dates: start: 20120807
  10. TRAMADOL. [Suspect]
     Active Substance: TRAMADOL
     Dosage: 50 MG, EVERY 6-8 HOURS
     Route: 048
  11. MORPHINE [Suspect]
     Active Substance: MORPHINE
     Dosage: 5 MG, Q4H
     Route: 048
     Dates: start: 20120621, end: 20120621
  12. MORPHINE [Suspect]
     Active Substance: MORPHINE
     Dosage: 1 DF, UNK
     Dates: start: 2012
  13. METAMIZOLE [Concomitant]
     Active Substance: METAMIZOLE
     Indication: ANALGESIC THERAPY
  14. CIPROFLOXACIN. [Concomitant]
     Active Substance: CIPROFLOXACIN
     Indication: MORGANELLA INFECTION
     Dosage: 1000 MG, UNK
     Route: 048
     Dates: start: 201206
  15. CODEINE [Concomitant]
     Active Substance: CODEINE
     Indication: ANALGESIC THERAPY
     Dosage: UNK
  16. TRIMETHOPRIM. [Concomitant]
     Active Substance: TRIMETHOPRIM
     Indication: MORGANELLA INFECTION
     Dosage: 5.000 ML, EVERY 12 HOURS
     Route: 048
     Dates: start: 20120621, end: 20120621

REACTIONS (8)
  - Pyrexia [Recovered/Resolved]
  - Death [Fatal]
  - Apathy [Unknown]
  - Communication disorder [Unknown]
  - Somnolence [Unknown]
  - Musculoskeletal stiffness [Unknown]
  - Chills [Recovered/Resolved]
  - Hyperthermia [Recovered/Resolved]

NARRATIVE: CASE EVENT DATE: 20120612
